FAERS Safety Report 15826009 (Version 1)
Quarter: 2019Q1

REPORT INFORMATION
  Report Type: Spontaneous
  Country: HU (occurrence: HU)
  Receive Date: 20190115
  Receipt Date: 20190115
  Transmission Date: 20190417
  Serious: Yes (Other)
  Sender: FDA-Public Use
  Company Number: HU-MYLANLABS-2019M1002623

PATIENT
  Age: 43 Year
  Sex: Female

DRUGS (3)
  1. TAXOL [Suspect]
     Active Substance: PACLITAXEL
     Indication: OVARIAN EPITHELIAL CANCER
     Dosage: UNK UNK, CYCLIC (6 CYCLES)
     Route: 065
  2. BEVACIZUMAB. [Suspect]
     Active Substance: BEVACIZUMAB
     Indication: OVARIAN EPITHELIAL CANCER
     Dosage: UNK
     Route: 065
  3. CARBOPLATIN. [Suspect]
     Active Substance: CARBOPLATIN
     Indication: OVARIAN EPITHELIAL CANCER
     Dosage: UNK
     Route: 065

REACTIONS (2)
  - Malignant neoplasm progression [Not Recovered/Not Resolved]
  - Ovarian epithelial cancer [Not Recovered/Not Resolved]
